FAERS Safety Report 9975729 (Version 1)
Quarter: 2014Q1

REPORT INFORMATION
  Report Type: Spontaneous
  Country: US (occurrence: US)
  Receive Date: 20140306
  Receipt Date: 20140306
  Transmission Date: 20141002
  Serious: Yes (Other)
  Sender: FDA-Public Use
  Company Number: US-BAXTER-2014BAX010248

PATIENT
  Age: 64 Year
  Sex: Female

DRUGS (5)
  1. ENDOXAN [Suspect]
     Indication: MICROSCOPIC POLYANGIITIS
     Route: 048
  2. PREDNISONE [Suspect]
     Indication: MICROSCOPIC POLYANGIITIS
     Route: 048
  3. PREDNISONE [Suspect]
     Route: 048
  4. RITUXIMAB [Suspect]
     Indication: MICROSCOPIC POLYANGIITIS
     Route: 042
  5. AZATHIOPRINE [Suspect]
     Indication: MICROSCOPIC POLYANGIITIS
     Route: 048

REACTIONS (3)
  - Infected skin ulcer [Unknown]
  - Pancytopenia [Recovered/Resolved]
  - Cytomegalovirus infection [Recovered/Resolved]
